FAERS Safety Report 15924365 (Version 2)
Quarter: 2019Q1

REPORT INFORMATION
  Report Type: Spontaneous
  Country: US (occurrence: US)
  Receive Date: 20190205
  Receipt Date: 20190219
  Transmission Date: 20190417
  Serious: No
  Sender: FDA-Public Use
  Company Number: US-ALLERGAN-1828431US

PATIENT
  Age: 15 Year
  Sex: Male

DRUGS (1)
  1. BOTOX [Suspect]
     Active Substance: ONABOTULINUMTOXINA
     Indication: MIGRAINE
     Dosage: 105 UNITS, SINGLE
     Route: 030
     Dates: start: 20180524, end: 20180524

REACTIONS (3)
  - Nausea [Recovered/Resolved]
  - Anxiety [Recovered/Resolved]
  - Off label use [Unknown]
